FAERS Safety Report 17503001 (Version 1)
Quarter: 2020Q1

REPORT INFORMATION
  Report Type: Spontaneous
  Country: CN (occurrence: CN)
  Receive Date: 20200305
  Receipt Date: 20200305
  Transmission Date: 20200409
  Serious: Yes (Hospitalization)
  Sender: FDA-Public Use
  Company Number: CN-ELI_LILLY_AND_COMPANY-CN202002010962

PATIENT
  Age: 85 Year
  Sex: Female
  Weight: 71 kg

DRUGS (4)
  1. QUAN BO [Suspect]
     Active Substance: NEDAPLATIN
     Indication: LUNG ADENOCARCINOMA
     Dosage: 50 MG, SINGLE
     Route: 041
     Dates: start: 20200211, end: 20200211
  2. SODIUM CHLORIDE. [Concomitant]
     Active Substance: SODIUM CHLORIDE
     Dosage: 100 ML, SINGLE
     Route: 041
     Dates: start: 20200211, end: 20200211
  3. SODIUM CHLORIDE. [Concomitant]
     Active Substance: SODIUM CHLORIDE
     Indication: VEHICLE SOLUTION USE
     Dosage: 250 ML, SINGLE
     Route: 041
     Dates: start: 20200211, end: 20200211
  4. ALIMTA [Suspect]
     Active Substance: PEMETREXED DISODIUM
     Indication: LUNG ADENOCARCINOMA
     Dosage: 0.7 G, SINGLE
     Route: 041
     Dates: start: 20200211, end: 20200211

REACTIONS (3)
  - Chest discomfort [Recovering/Resolving]
  - Bone marrow failure [Recovering/Resolving]
  - Dyspnoea [Recovering/Resolving]

NARRATIVE: CASE EVENT DATE: 20200213
